FAERS Safety Report 9014422 (Version 3)
Quarter: 2013Q3

REPORT INFORMATION
  Report Type: Report from Study
  Country: JP (occurrence: JP)
  Receive Date: 20130115
  Receipt Date: 20130920
  Transmission Date: 20140515
  Serious: Yes (Other)
  Sender: FDA-Public Use
  Company Number: JP-VERTEX PHARMACEUTICAL INC.-AE-2012-005674

PATIENT
  Age: 68 Year
  Sex: Female

DRUGS (10)
  1. VX-950 (TELAPREVIR) [Suspect]
     Indication: HEPATITIS C
     Dosage: 2250 MG, QD
     Route: 048
     Dates: start: 20120227, end: 20120301
  2. VX-950 (TELAPREVIR) [Suspect]
     Dosage: 1500 MG, QD
     Route: 048
     Dates: start: 20120302, end: 20120408
  3. RIBAVIRIN [Suspect]
     Indication: HEPATITIS C
     Dosage: 600 MG, QD
     Route: 048
     Dates: start: 20120227, end: 20120311
  4. RIBAVIRIN [Suspect]
     Dosage: 400 MG, QD
     Route: 048
     Dates: start: 20120312, end: 20120415
  5. RIBAVIRIN [Suspect]
     Dosage: 200 MG, QD
     Route: 048
     Dates: start: 20120416, end: 20120814
  6. PEGINTRON [Suspect]
     Indication: HEPATITIS C
     Dosage: 1.7 ?G/KG, QW
     Route: 058
     Dates: start: 20120227, end: 20120808
  7. LOXONIN [Suspect]
     Indication: PROPHYLAXIS
     Dosage: 90 MG, QD
     Route: 048
     Dates: start: 20120227, end: 20120814
  8. SELBEX [Suspect]
     Indication: PROPHYLAXIS
     Dosage: 150 MG, QD
     Route: 048
     Dates: start: 20120227, end: 20120814
  9. OMEPRAL [Suspect]
     Indication: NAUSEA
     Dosage: 20 MG, QD
     Route: 048
     Dates: start: 20120229, end: 20120814
  10. ZYLORIC [Suspect]
     Indication: HYPERURICAEMIA
     Dosage: 200 MG, QD
     Route: 048
     Dates: start: 20120302, end: 20120422

REACTIONS (2)
  - Toxic skin eruption [Recovered/Resolved]
  - Anaemia [Recovered/Resolved]
